FAERS Safety Report 23253183 (Version 2)
Quarter: 2024Q3

REPORT INFORMATION
  Report Type: Spontaneous
  Country: FR (occurrence: FR)
  Receive Date: 20231202
  Receipt Date: 20240919
  Transmission Date: 20241016
  Serious: Yes (Hospitalization, Other)
  Sender: AUROBINDO
  Company Number: FR-AFSSAPS-CF2023000537

PATIENT
  Age: 57 Year
  Sex: Male
  Weight: 70 kg

DRUGS (2)
  1. LAMOTRIGINE [Suspect]
     Active Substance: LAMOTRIGINE
     Indication: Schizophrenia
     Dosage: 25 MILLIGRAM, ONCE A DAY
     Route: 048
     Dates: start: 20231014, end: 20231026
  2. LAMOTRIGINE [Suspect]
     Active Substance: LAMOTRIGINE
     Indication: Bipolar disorder

REACTIONS (3)
  - Cytotoxic lesions of corpus callosum [Recovering/Resolving]
  - Cerebellar syndrome [Recovering/Resolving]
  - Extensor plantar response [Recovering/Resolving]

NARRATIVE: CASE EVENT DATE: 20231026
